FAERS Safety Report 9465448 (Version 1)
Quarter: 2013Q3

REPORT INFORMATION
  Report Type: Spontaneous
  Country: US (occurrence: US)
  Receive Date: 20130820
  Receipt Date: 20130820
  Transmission Date: 20140515
  Serious: Yes (Life-Threatening, Hospitalization)
  Sender: FDA-Public Use
  Company Number: US-JNJFOC-20130808156

PATIENT
  Age: 13 Month
  Sex: Male
  Weight: 10 kg

DRUGS (1)
  1. UNISOM [Suspect]
     Indication: ACCIDENTAL EXPOSURE TO PRODUCT
     Dosage: 20 GELCAPS MISSING FROM BOTTLE
     Route: 048

REACTIONS (4)
  - Status epilepticus [Recovered/Resolved]
  - Accidental exposure to product [Unknown]
  - Tachycardia [Recovered/Resolved]
  - Overdose [Recovered/Resolved]
